FAERS Safety Report 16432416 (Version 1)
Quarter: 2019Q2

REPORT INFORMATION
  Report Type: Spontaneous
  Country: US (occurrence: US)
  Receive Date: 20190614
  Receipt Date: 20190614
  Transmission Date: 20190711
  Serious: No
  Sender: FDA-Public Use
  Company Number: US-APOTEX-2019AP014772

PATIENT
  Age: 59 Year
  Sex: Female

DRUGS (2)
  1. AZELASTINE HYDROCHLORIDE. [Suspect]
     Active Substance: AZELASTINE HYDROCHLORIDE
     Indication: SINUSITIS
     Dosage: UNK ONE-TWO SPRAY IN THE NOSTRIL EVERY 12 HOURS (ONCE IN THE MORNING AND IN THE EVENING)
     Route: 045
     Dates: start: 201904, end: 201904
  2. AZELASTINE HYDROCHLORIDE. [Suspect]
     Active Substance: AZELASTINE HYDROCHLORIDE
     Dosage: UNK ONE TO TWO SPRAYS DAILY
     Route: 045

REACTIONS (4)
  - Headache [Recovered/Resolved]
  - Dry mouth [Recovered/Resolved]
  - Product substitution issue [Unknown]
  - Fatigue [Recovered/Resolved]

NARRATIVE: CASE EVENT DATE: 201904
